FAERS Safety Report 19799359 (Version 2)
Quarter: 2021Q4

REPORT INFORMATION
  Report Type: Report from Study
  Country: BR (occurrence: BR)
  Receive Date: 20210907
  Receipt Date: 20211007
  Transmission Date: 20220303
  Serious: Yes (Life-Threatening, Hospitalization, Other)
  Sender: FDA-Public Use
  Company Number: NVSC2021BR201295

PATIENT
  Age: 84 Year
  Sex: Male

DRUGS (1)
  1. INDACATEROL MALEATE [Suspect]
     Active Substance: INDACATEROL MALEATE
     Indication: Product used for unknown indication
     Dosage: 1 DF, QD (CONTINUE USE APPLY ONE PULSE)
     Route: 065

REACTIONS (5)
  - Bradycardia [Unknown]
  - Near death experience [Recovered/Resolved]
  - Cardiac disorder [Recovered/Resolved]
  - Speech disorder [Unknown]
  - Product availability issue [Unknown]

NARRATIVE: CASE EVENT DATE: 20120101
